FAERS Safety Report 18154253 (Version 2)
Quarter: 2020Q3

REPORT INFORMATION
  Report Type: Spontaneous
  Country: US (occurrence: US)
  Receive Date: 20200817
  Receipt Date: 20200902
  Transmission Date: 20201103
  Serious: Yes (Other)
  Sender: FDA-Public Use
  Company Number: US-ROCHE-2654574

PATIENT
  Sex: Male
  Weight: 78.5 kg

DRUGS (30)
  1. GOCOVRI [Suspect]
     Active Substance: AMANTADINE
     Route: 048
     Dates: start: 20190611
  2. RYTARY [Suspect]
     Active Substance: CARBIDOPA\LEVODOPA
     Indication: PRODUCT USED FOR UNKNOWN INDICATION
     Dosage: 23.75?95 MG
     Route: 048
     Dates: start: 201506
  3. FEXOFENADINE [Concomitant]
     Active Substance: FEXOFENADINE HYDROCHLORIDE
     Dates: start: 20191201
  4. TAMSULOSIN [Concomitant]
     Active Substance: TAMSULOSIN
  5. RYTARY [Suspect]
     Active Substance: CARBIDOPA\LEVODOPA
     Route: 048
     Dates: end: 20200404
  6. GOCOVRI [Concomitant]
     Active Substance: AMANTADINE
     Route: 048
     Dates: start: 20191106
  7. CLONAZEPAM. [Suspect]
     Active Substance: CLONAZEPAM
     Indication: INSOMNIA
     Route: 065
  8. RYTARY [Suspect]
     Active Substance: CARBIDOPA\LEVODOPA
     Route: 048
     Dates: start: 20200504, end: 20200804
  9. ALPRAZOLAM. [Concomitant]
     Active Substance: ALPRAZOLAM
  10. GOCOVRI [Concomitant]
     Active Substance: AMANTADINE
     Indication: DYSKINESIA
     Route: 048
     Dates: start: 20181030, end: 20181106
  11. RYTARY [Concomitant]
     Active Substance: CARBIDOPA\LEVODOPA
     Dosage: 2 CAPSULES, 3X/DAY, THERAPY ONGOING:UNKNOWN
     Dates: start: 201506
  12. KETOCONAZOLE. [Concomitant]
     Active Substance: KETOCONAZOLE
  13. ASPIRIN. [Concomitant]
     Active Substance: ASPIRIN
  14. TYLENOL [Concomitant]
     Active Substance: ACETAMINOPHEN
  15. MELATONIN [Concomitant]
     Active Substance: MELATONIN
  16. RYTARY [Concomitant]
     Active Substance: CARBIDOPA\LEVODOPA
     Dates: start: 201506
  17. ATORVASTATIN [Concomitant]
     Active Substance: ATORVASTATIN
  18. VERAPAMIL [Concomitant]
     Active Substance: VERAPAMIL HYDROCHLORIDE
  19. FLOMAX [Concomitant]
     Active Substance: TAMSULOSIN HYDROCHLORIDE
  20. GOCOVRI [Concomitant]
     Active Substance: AMANTADINE
     Route: 048
     Dates: start: 20191106
  21. SERTRALINE [Concomitant]
     Active Substance: SERTRALINE HYDROCHLORIDE
  22. RYTARY [Concomitant]
     Active Substance: CARBIDOPA\LEVODOPA
     Dosage: 8 PILLS A DAY
     Dates: start: 20200404
  23. GOCOVRI [Suspect]
     Active Substance: AMANTADINE
     Indication: DYSKINESIA
     Route: 048
     Dates: start: 20181020, end: 20181105
  24. CIALIS [Concomitant]
     Active Substance: TADALAFIL
  25. VITAMIN D3 [Concomitant]
     Active Substance: CHOLECALCIFEROL
  26. FEXOFENADINE [Concomitant]
     Active Substance: FEXOFENADINE HYDROCHLORIDE
     Dates: start: 201811, end: 2018
  27. BENADRYL [Concomitant]
     Active Substance: DIPHENHYDRAMINE HYDROCHLORIDE
  28. ROPINIROLE HCL [Concomitant]
     Active Substance: ROPINIROLE HYDROCHLORIDE
  29. RYTARY [Concomitant]
     Active Substance: CARBIDOPA\LEVODOPA
     Dates: start: 20200405, end: 20200408
  30. RYTARY [Concomitant]
     Active Substance: CARBIDOPA\LEVODOPA
     Dates: start: 20200409

REACTIONS (12)
  - Hangover [Unknown]
  - Paranoia [Unknown]
  - Speech disorder [Unknown]
  - Insomnia [Unknown]
  - Weight increased [Unknown]
  - Hyperhidrosis [Unknown]
  - Dyskinesia [Unknown]
  - Hallucinations, mixed [Unknown]
  - Ocular discomfort [Unknown]
  - Fatigue [Unknown]
  - Peripheral swelling [Unknown]
  - Loss of personal independence in daily activities [Unknown]
